FAERS Safety Report 16642005 (Version 2)
Quarter: 2019Q3

REPORT INFORMATION
  Report Type: Report from Study
  Country: AR (occurrence: AR)
  Receive Date: 20190729
  Receipt Date: 20190730
  Transmission Date: 20191004
  Serious: Yes (Death, Hospitalization)
  Sender: FDA-Public Use
  Company Number: PHHY2017AR112814

PATIENT
  Sex: Female

DRUGS (1)
  1. SANDOSTATIN LAR DEPOT [Suspect]
     Active Substance: OCTREOTIDE ACETATE
     Indication: NEUROENDOCRINE TUMOUR
     Dosage: 30 MG, QMO (EVERY 28 DAYS)
     Route: 065
     Dates: start: 20151127

REACTIONS (11)
  - Blood pressure increased [Recovering/Resolving]
  - Metastases to the mediastinum [Recovering/Resolving]
  - Urinary incontinence [Recovering/Resolving]
  - Musculoskeletal pain [Recovering/Resolving]
  - Neuroendocrine tumour [Fatal]
  - Blood potassium decreased [Recovering/Resolving]
  - Malignant neoplasm progression [Fatal]
  - Dizziness [Recovering/Resolving]
  - Blood sodium decreased [Recovering/Resolving]
  - Somnolence [Recovering/Resolving]
  - Metastases to liver [Recovered/Resolved]
